FAERS Safety Report 5566746-7 (Version None)
Quarter: 2007Q4

REPORT INFORMATION
  Report Type: 
  Country: None (occurrence: None)
  Receive Date: 20071219
  Receipt Date: 20071210
  Transmission Date: 20080405
  Serious: Yes (Other)
  Sender: FDA-Public Use
  Company Number: US-ELI_LILLY_AND_COMPANY-US200710005685

PATIENT
  Sex: Female
  Weight: 86.168 kg

DRUGS (1)
  1. CYMBALTA [Suspect]
     Dosage: 1 MG, UNK

REACTIONS (1)
  - LIVER FUNCTION TEST ABNORMAL [None]
